FAERS Safety Report 9306774 (Version 2)
Quarter: 2013Q1

REPORT INFORMATION
  Report Type: Spontaneous
  Country: US (occurrence: None)
  Receive Date: 20130314
  Receipt Date: 20130329
  Transmission Date: 20140127
  Serious: Yes (Death, Hospitalization)
  Sender: FDA-Public Use
  Company Number: 2013-054

PATIENT
  Age: 73 Year
  Sex: Male
  Weight: 74.8 kg

DRUGS (1)
  1. FAZACLO (CLOZAPINE, USP) ODT (ORAL DISINTEGRATING TABLET) [Suspect]
     Indication: SCHIZOPHRENIA
     Route: 048
     Dates: start: 20110611, end: 20121031

REACTIONS (3)
  - Dementia [None]
  - Speech disorder [None]
  - Tardive dyskinesia [None]
